FAERS Safety Report 20762790 (Version 2)
Quarter: 2022Q2

REPORT INFORMATION
  Report Type: Spontaneous
  Country: FR (occurrence: FR)
  Receive Date: 20220428
  Receipt Date: 20220506
  Transmission Date: 20220721
  Serious: Yes (Other)
  Sender: FDA-Public Use
  Company Number: FR-TEVA-2022-FR-2029979

PATIENT
  Age: 15 Year
  Sex: Male

DRUGS (4)
  1. VORICONAZOLE [Interacting]
     Active Substance: VORICONAZOLE
     Indication: Aspergillus infection
     Route: 065
  2. ETHAMBUTOL [Interacting]
     Active Substance: ETHAMBUTOL HYDROCHLORIDE
     Indication: Tuberculosis
     Dosage: 22.2 MG/KG DAILY;
     Route: 065
  3. TACROLIMUS [Concomitant]
     Active Substance: TACROLIMUS
     Indication: Prophylaxis against transplant rejection
     Route: 065
  4. CORTISONE [Concomitant]
     Active Substance: CORTISONE
     Indication: Prophylaxis against transplant rejection
     Route: 065

REACTIONS (3)
  - Toxic optic neuropathy [Recovering/Resolving]
  - Neuropathy peripheral [Recovering/Resolving]
  - Drug interaction [Unknown]
